FAERS Safety Report 7809721-1 (Version None)
Quarter: 2011Q4

REPORT INFORMATION
  Report Type: 
  Country: None (occurrence: None)
  Receive Date: 20111012
  Receipt Date: 20110930
  Transmission Date: 20120403
  Serious: Yes (Hospitalization)
  Sender: FDA-Public Use
  Company Number: AT-GLAXOSMITHKLINE-B0754115A

PATIENT
  Age: 60 Year
  Sex: Female

DRUGS (9)
  1. MELATONIN [Suspect]
     Route: 065
     Dates: start: 20110801, end: 20110912
  2. RISPERDAL [Suspect]
     Indication: PRODUCT USED FOR UNKNOWN INDICATION
     Route: 065
     Dates: start: 20110814
  3. DOMINAL [Suspect]
     Indication: PRODUCT USED FOR UNKNOWN INDICATION
     Route: 065
     Dates: start: 20110818
  4. LITHIUM CARBONATE [Suspect]
     Indication: PRODUCT USED FOR UNKNOWN INDICATION
     Dosage: 675MG PER DAY
     Route: 065
     Dates: start: 20090101, end: 20110912
  5. LORAZEPAM [Suspect]
     Indication: PRODUCT USED FOR UNKNOWN INDICATION
     Route: 065
     Dates: start: 20110813, end: 20110924
  6. AKINETON RET [Suspect]
     Indication: PRODUCT USED FOR UNKNOWN INDICATION
     Route: 065
     Dates: start: 20110908, end: 20110913
  7. LAMICTAL [Suspect]
     Indication: PRODUCT USED FOR UNKNOWN INDICATION
     Dosage: 200MG PER DAY
     Route: 065
     Dates: start: 20090101
  8. MIRTAZAPINE [Suspect]
     Indication: PRODUCT USED FOR UNKNOWN INDICATION
     Dosage: 60MG PER DAY
     Route: 065
     Dates: start: 20110701, end: 20110912
  9. IXEL [Suspect]
     Indication: PRODUCT USED FOR UNKNOWN INDICATION
     Route: 065
     Dates: start: 20110906, end: 20110913

REACTIONS (7)
  - TREMOR [None]
  - SEDATION [None]
  - CHILLS [None]
  - ATAXIA [None]
  - AGITATION [None]
  - DELIRIUM [None]
  - OEDEMA [None]
